FAERS Safety Report 13890638 (Version 1)
Quarter: 2017Q3

REPORT INFORMATION
  Report Type: Report from Study
  Country: US (occurrence: US)
  Receive Date: 20170822
  Receipt Date: 20170822
  Transmission Date: 20171127
  Serious: Yes (Life-Threatening, Hospitalization, Disabling)
  Sender: FDA-Public Use
  Company Number: US-GILEAD-2017-0283100

PATIENT
  Age: 86 Year
  Sex: Female
  Weight: 119.27 kg

DRUGS (10)
  1. METHIMAZOLE. [Concomitant]
     Active Substance: METHIMAZOLE
  2. AMIODARONE [Concomitant]
     Active Substance: AMIODARONE
  3. LASIX [Concomitant]
     Active Substance: FUROSEMIDE
  4. LOVASTATIN. [Concomitant]
     Active Substance: LOVASTATIN
  5. BENICAR [Concomitant]
     Active Substance: OLMESARTAN MEDOXOMIL
  6. CARTIA XT [Concomitant]
     Active Substance: DILTIAZEM HYDROCHLORIDE
  7. AMBRISENTAN [Suspect]
     Active Substance: AMBRISENTAN
     Indication: PULMONARY ARTERIAL HYPERTENSION
     Dosage: 5 MG, QD
     Route: 048
     Dates: start: 20170615, end: 20170711
  8. ADCIRCA [Concomitant]
     Active Substance: TADALAFIL
  9. ELIQUIS [Concomitant]
     Active Substance: APIXABAN
  10. OMEPRAZOLE. [Concomitant]
     Active Substance: OMEPRAZOLE

REACTIONS (2)
  - Generalised oedema [Unknown]
  - Oedema [Recovering/Resolving]

NARRATIVE: CASE EVENT DATE: 20170619
